FAERS Safety Report 24835000 (Version 2)
Quarter: 2025Q1

REPORT INFORMATION
  Report Type: Spontaneous
  Country: US (occurrence: US)
  Receive Date: 20250113
  Receipt Date: 20250201
  Transmission Date: 20250409
  Serious: Yes (Other)
  Sender: JOHNSON AND JOHNSON
  Company Number: US-JNJFOC-20250104429

PATIENT
  Age: 78 Year
  Sex: Female

DRUGS (1)
  1. OPSUMIT [Suspect]
     Active Substance: MACITENTAN
     Indication: Product used for unknown indication
     Route: 048
     Dates: start: 20231208, end: 20241211

REACTIONS (4)
  - Anaemia [Unknown]
  - White blood cell count decreased [Unknown]
  - Burning sensation [Unknown]
  - Feeling cold [Unknown]

NARRATIVE: CASE EVENT DATE: 20250102
